FAERS Safety Report 8556499-2 (Version None)
Quarter: 2012Q3

REPORT INFORMATION
  Report Type: 
  Country: None (occurrence: None)
  Receive Date: 20120801
  Receipt Date: 20120730
  Transmission Date: 20120928
  Serious: Yes (Hospitalization, Other)
  Sender: FDA-Public Use
  Company Number: PHHY2012AR055790

PATIENT
  Sex: Female

DRUGS (4)
  1. OMEPRAZOLE [Concomitant]
  2. ACETYLSALICYLIC ACID SRT [Concomitant]
  3. DIOVAN [Suspect]
     Indication: HYPERTENSION
     Dosage: 320 MG, DAILY
     Dates: start: 20120101
  4. ATORVASTATIN [Concomitant]

REACTIONS (4)
  - PULMONARY EMBOLISM [None]
  - AGITATION [None]
  - HEMIPLEGIA [None]
  - CEREBROVASCULAR ACCIDENT [None]
